FAERS Safety Report 6667654-0 (Version None)
Quarter: 2010Q2

REPORT INFORMATION
  Report Type: 
  Country: None (occurrence: None)
  Receive Date: 20100405
  Receipt Date: 20100325
  Transmission Date: 20101027
  Serious: Yes (Hospitalization)
  Sender: FDA-Public Use
  Company Number: B0636956A

PATIENT
  Sex: Male

DRUGS (18)
  1. MELPHALAN HYDROCHLORIDE [Suspect]
     Indication: MULTIPLE MYELOMA
     Route: 048
     Dates: start: 20091201
  2. THALIDOMIDE [Suspect]
     Indication: MULTIPLE MYELOMA
     Route: 048
     Dates: start: 20091201
  3. PREDNISONE TAB [Suspect]
     Indication: MULTIPLE MYELOMA
     Dates: start: 20091201
  4. OPIATES [Suspect]
     Indication: ANALGESIC THERAPY
  5. ENDONE [Concomitant]
     Indication: BACK PAIN
  6. COLOXYL WITH SENNA [Concomitant]
     Indication: CONSTIPATION
  7. OMEPRAZOLE [Concomitant]
     Indication: PROPHYLAXIS
  8. THYROXIN [Concomitant]
     Indication: DRUG USE FOR UNKNOWN INDICATION
  9. UNKNOWN DRUG [Concomitant]
  10. MOVICOL [Concomitant]
     Indication: CONSTIPATION
  11. DIFLUCAN [Concomitant]
     Indication: DRUG USE FOR UNKNOWN INDICATION
  12. ASPIRIN [Concomitant]
     Indication: DRUG USE FOR UNKNOWN INDICATION
  13. MYCOSTATIN [Concomitant]
  14. OXYCODONE [Concomitant]
     Indication: DRUG USE FOR UNKNOWN INDICATION
  15. METOCLOPRAMIDE [Concomitant]
     Indication: DRUG USE FOR UNKNOWN INDICATION
  16. ENOXAPARIN SODIUM [Concomitant]
  17. PAMIDRONATE DISODIUM [Concomitant]
     Indication: PAIN
  18. OXYCODONE HCL [Concomitant]
     Indication: PAIN

REACTIONS (8)
  - BACK PAIN [None]
  - CONFUSIONAL STATE [None]
  - DYSURIA [None]
  - INTERVERTEBRAL DISC DISORDER [None]
  - NAUSEA [None]
  - OEDEMA PERIPHERAL [None]
  - PYREXIA [None]
  - STAPHYLOCOCCAL SEPSIS [None]
